FAERS Safety Report 4477680-8 (Version None)
Quarter: 2004Q3

REPORT INFORMATION
  Report Type: 
  Country: None (occurrence: None)
  Receive Date: 20040923
  Receipt Date: 20040719
  Transmission Date: 20050211
  Serious: No
  Sender: FDA-Public Use
  Company Number: USA040773089

PATIENT
  Age: 79 Year
  Sex: Female

DRUGS (11)
  1. FORTEO [Suspect]
     Indication: OSTEOPOROSIS
     Dates: start: 20040706, end: 20040716
  2. EVISTA [Concomitant]
  3. INDERAL [Concomitant]
  4. PEPCID [Concomitant]
  5. LEXAPRO [Concomitant]
  6. PLAVIX (CLOPIDOGRIL SULFATE) [Concomitant]
  7. OSCAL (CALCIUM CARBONATE) [Concomitant]
  8. REMERON [Concomitant]
  9. VALIUM [Concomitant]
  10. TYLENOL W/ CODEINE NO. 3 [Concomitant]
  11. FOSAMAX [Concomitant]

REACTIONS (4)
  - ASTHENIA [None]
  - DIZZINESS [None]
  - MIDDLE EAR EFFUSION [None]
  - NAUSEA [None]
